FAERS Safety Report 8428755-X (Version None)
Quarter: 2012Q2

REPORT INFORMATION
  Report Type: 
  Country: None (occurrence: None)
  Receive Date: 20120606
  Receipt Date: 20120517
  Transmission Date: 20120825
  Serious: Yes (Other)
  Sender: FDA-Public Use
  Company Number: 2012P1004175

PATIENT
  Age: 76 Year
  Sex: Female
  Weight: 81.6475 kg

DRUGS (3)
  1. AZO YEAST TABLETS 3X (NO PREF. NAME) [Suspect]
     Indication: FUNGAL INFECTION
     Dosage: 3 TABLETS;PO 1 TABLET;X1;PO
     Route: 048
     Dates: start: 20120206, end: 20120206
  2. AZO YEAST TABLETS 3X (NO PREF. NAME) [Suspect]
     Indication: FUNGAL INFECTION
     Dosage: 3 TABLETS;PO 1 TABLET;X1;PO
     Route: 048
     Dates: start: 20120205, end: 20120205
  3. ASPIRIN [Concomitant]

REACTIONS (2)
  - BURNING SENSATION [None]
  - TREATMENT NONCOMPLIANCE [None]
